FAERS Safety Report 4451038-X (Version None)
Quarter: 2004Q3

REPORT INFORMATION
  Report Type: 
  Country: None (occurrence: None)
  Receive Date: 20040913
  Receipt Date: 20040617
  Transmission Date: 20050211
  Serious: No
  Sender: FDA-Public Use
  Company Number: 2004-BP-04849BP (0)

PATIENT
  Age: 70 Year
  Sex: Male

DRUGS (7)
  1. SPIRIVA [Suspect]
     Indication: CHRONIC OBSTRUCTIVE AIRWAYS DISEASE
     Dosage: 18 MCG (18 MCG, 1 CAPSULE OD) IH
     Route: 055
     Dates: start: 20040617
  2. DUONEB [Concomitant]
  3. PREDNISONE [Concomitant]
  4. OXYGEN (OXYGEN) [Concomitant]
  5. QVAR (BECLOMETASONE DIPROPIONATE) [Concomitant]
  6. BUFFERIN (BUFFERIN /USA/) [Concomitant]
  7. ALEVE [Concomitant]

REACTIONS (1)
  - DYSPNOEA [None]
